FAERS Safety Report 16842772 (Version 3)
Quarter: 2019Q3

REPORT INFORMATION
  Report Type: Spontaneous
  Country: US (occurrence: US)
  Receive Date: 20190924
  Receipt Date: 20190929
  Transmission Date: 20191005
  Serious: Yes (Hospitalization, Other)
  Sender: FDA-Public Use
  Company Number: US-BIOGEN-2019BI00787345

PATIENT
  Age: 26 Year
  Sex: Female

DRUGS (2)
  1. TECFIDERA [Suspect]
     Active Substance: DIMETHYL FUMARATE
     Indication: MULTIPLE SCLEROSIS
     Route: 065
     Dates: start: 20190904, end: 20190913
  2. TECFIDERA [Suspect]
     Active Substance: DIMETHYL FUMARATE
     Dosage: STARTING DOSE
     Route: 048
     Dates: start: 20190905, end: 20190910

REACTIONS (11)
  - Hypoaesthesia [Not Recovered/Not Resolved]
  - Depression [Not Recovered/Not Resolved]
  - Vomiting [Unknown]
  - Renal failure [Not Recovered/Not Resolved]
  - Pulmonary thrombosis [Not Recovered/Not Resolved]
  - Seizure [Not Recovered/Not Resolved]
  - Gait inability [Unknown]
  - Loss of control of legs [Not Recovered/Not Resolved]
  - Thrombosis [Not Recovered/Not Resolved]
  - Stress [Not Recovered/Not Resolved]
  - Fall [Recovered/Resolved]

NARRATIVE: CASE EVENT DATE: 20190905
